FAERS Safety Report 7825750-6 (Version None)
Quarter: 2011Q4

REPORT INFORMATION
  Report Type: 
  Country: None (occurrence: None)
  Receive Date: 20111019
  Receipt Date: 20111013
  Transmission Date: 20120403
  Serious: Yes (Other)
  Sender: FDA-Public Use
  Company Number: PHHY2011JP64694

PATIENT
  Sex: Female
  Weight: 58 kg

DRUGS (4)
  1. AFINITOR [Suspect]
     Indication: METASTATIC RENAL CELL CARCINOMA
     Dosage: 10 MG, DAILY
     Route: 048
     Dates: start: 20110113, end: 20110815
  2. PROMAC [Concomitant]
     Dosage: 150 MG, UNK
     Route: 048
  3. LEVOTHYROXINE SODIUM [Concomitant]
     Dosage: 75 UG, UNK
     Route: 048
     Dates: start: 20110104
  4. FERROUS CITRATE [Concomitant]
     Dosage: 100 MG, UNK
     Route: 048
     Dates: start: 20100301

REACTIONS (3)
  - HAEMOGLOBIN DECREASED [None]
  - FEMORAL NECK FRACTURE [None]
  - BLOOD LACTATE DEHYDROGENASE INCREASED [None]
